FAERS Safety Report 8255898-6 (Version None)
Quarter: 2012Q2

REPORT INFORMATION
  Report Type: 
  Country: None (occurrence: None)
  Receive Date: 20120403
  Receipt Date: 20120325
  Transmission Date: 20120825
  Serious: Yes (Hospitalization, Other)
  Sender: FDA-Public Use
  Company Number: US-AMGEN-USASP2012019639

PATIENT
  Age: 61 Year
  Sex: Male

DRUGS (1)
  1. ENBREL [Suspect]
     Indication: RHEUMATOID ARTHRITIS
     Dosage: 50 MG, QWK
     Dates: start: 20010501, end: 20120301

REACTIONS (11)
  - FALL [None]
  - NECK PAIN [None]
  - BACK PAIN [None]
  - ULCER HAEMORRHAGE [None]
  - ASTHENIA [None]
  - ARTHRALGIA [None]
  - HIP FRACTURE [None]
  - DIVERTICULITIS [None]
  - PNEUMONIA [None]
  - FEMUR FRACTURE [None]
  - WEIGHT DECREASED [None]
